FAERS Safety Report 4768625-1 (Version None)
Quarter: 2005Q3

REPORT INFORMATION
  Report Type: 
  Country: None (occurrence: None)
  Receive Date: 20050914
  Receipt Date: 20050907
  Transmission Date: 20060218
  Serious: Yes (Death)
  Sender: FDA-Public Use
  Company Number: US-JNJFOC-20050901973

PATIENT
  Age: 55 Year
  Sex: Female

DRUGS (20)
  1. ACETAMINOPHEN AND CODEINE PHOSPHATE [Suspect]
     Indication: DRUG USE FOR UNKNOWN INDICATION
     Route: 048
  2. HYDROCODONE BITARTRATE + ACETAMINOPHEN [Suspect]
  3. HYDROCODONE BITARTRATE + ACETAMINOPHEN [Suspect]
     Indication: DRUG USE FOR UNKNOWN INDICATION
  4. ESCITALOPRAM OXALATE [Suspect]
     Indication: DRUG USE FOR UNKNOWN INDICATION
  5. IBUPROFEN [Suspect]
     Indication: DRUG USE FOR UNKNOWN INDICATION
  6. CELECOXIB [Suspect]
     Indication: DRUG USE FOR UNKNOWN INDICATION
  7. ZOLPIDEM [Suspect]
     Indication: DRUG USE FOR UNKNOWN INDICATION
  8. METRONIDAZOLE [Suspect]
     Indication: DRUG USE FOR UNKNOWN INDICATION
  9. DIAZEPAM [Suspect]
     Indication: DRUG USE FOR UNKNOWN INDICATION
  10. METAXALONE [Suspect]
     Indication: DRUG USE FOR UNKNOWN INDICATION
  11. AMITRIPTYLINE HCL [Suspect]
     Indication: DRUG USE FOR UNKNOWN INDICATION
  12. CITALOPRAM [Suspect]
     Indication: DRUG USE FOR UNKNOWN INDICATION
  13. METFORMIN [Suspect]
     Indication: DRUG USE FOR UNKNOWN INDICATION
  14. ASPIRIN [Suspect]
     Indication: DRUG USE FOR UNKNOWN INDICATION
  15. BUPROPION [Suspect]
     Indication: DRUG USE FOR UNKNOWN INDICATION
  16. PROMETHAZINE/CODEINE [Suspect]
  17. PROMETHAZINE/CODEINE [Suspect]
     Indication: DRUG USE FOR UNKNOWN INDICATION
  18. NABUMETONE [Suspect]
     Indication: DRUG USE FOR UNKNOWN INDICATION
  19. IBUPROFEN [Suspect]
  20. ASPIRIN [Suspect]
     Indication: DRUG USE FOR UNKNOWN INDICATION

REACTIONS (7)
  - CARDIAC FAILURE CONGESTIVE [None]
  - CEREBRAL INFARCTION [None]
  - COMPLETED SUICIDE [None]
  - INTENTIONAL MISUSE [None]
  - LIVER FUNCTION TEST ABNORMAL [None]
  - PNEUMONIA [None]
  - RENAL FAILURE [None]
